FAERS Safety Report 9474263 (Version 1)
Quarter: 2013Q3

REPORT INFORMATION
  Report Type: Spontaneous
  Country: US (occurrence: None)
  Receive Date: 20130820
  Receipt Date: 20130820
  Transmission Date: 20140515
  Serious: Yes (Other)
  Sender: FDA-Public Use
  Company Number: AE-SPE-2013-024

PATIENT
  Age: 52 Year
  Sex: Female

DRUGS (3)
  1. MEIACT MS [Suspect]
     Route: 048
     Dates: start: 20130723, end: 20130724
  2. LOXOPROFEN SODIUM HYDRATE [Concomitant]
  3. REBAMIPIDE [Concomitant]

REACTIONS (3)
  - Dermatitis allergic [None]
  - Erythema [None]
  - Rash [None]
